FAERS Safety Report 20397292 (Version 2)
Quarter: 2022Q1

REPORT INFORMATION
  Report Type: Spontaneous
  Country: US (occurrence: US)
  Receive Date: 20220131
  Receipt Date: 20220201
  Transmission Date: 20220423
  Serious: No
  Sender: FDA-Public Use
  Company Number: US-ABBVIE-21K-163-3899556-00

PATIENT
  Age: 43 Year
  Sex: Female
  Weight: 54.026 kg

DRUGS (7)
  1. HUMIRA [Suspect]
     Active Substance: ADALIMUMAB
     Indication: Crohn^s disease
     Route: 058
     Dates: start: 201811
  2. COVID-19 VACCINE [Concomitant]
     Indication: COVID-19 immunisation
     Dosage: MODERNA MANUFACTURER
     Route: 030
     Dates: start: 20210325, end: 20210325
  3. COVID-19 VACCINE [Concomitant]
     Dosage: MODERNA MANUFACTURER
     Route: 030
     Dates: start: 20210422, end: 20210422
  4. FLUTICASONE [Concomitant]
     Active Substance: FLUTICASONE
     Indication: Hypersensitivity
  5. FLUTICASONE [Concomitant]
     Active Substance: FLUTICASONE
     Indication: Upper-airway cough syndrome
  6. FLUTICASONE [Concomitant]
     Active Substance: FLUTICASONE
     Indication: Nasal septum deviation
  7. DAYSEE [Concomitant]
     Active Substance: ETHINYL ESTRADIOL\LEVONORGESTREL
     Indication: Menstrual cycle management

REACTIONS (3)
  - Injection site reaction [Recovering/Resolving]
  - Injection site urticaria [Recovering/Resolving]
  - Device issue [Recovered/Resolved]

NARRATIVE: CASE EVENT DATE: 20210510
